FAERS Safety Report 5110692-X (Version None)
Quarter: 2006Q3

REPORT INFORMATION
  Report Type: 
  Country: None (occurrence: None)
  Receive Date: 20060731
  Receipt Date: 20060612
  Transmission Date: 20061208
  Serious: No
  Sender: FDA-Public Use
  Company Number: 2006PV015461

PATIENT
  Age: 64 Year
  Sex: Male

DRUGS (2)
  1. BYETTA INECTION (0.25 MG/ML) [Suspect]
     Indication: DIABETES MELLITUS NON-INSULIN-DEPENDENT
     Dosage: 5 MCG;BID;SC
     Route: 058
     Dates: start: 20060503
  2. COUMADIN [Concomitant]

REACTIONS (5)
  - INFREQUENT BOWEL MOVEMENTS [None]
  - INJECTION SITE BRUISING [None]
  - NAUSEA [None]
  - NECK PAIN [None]
  - VOMITING [None]
